FAERS Safety Report 8821439 (Version 2)
Quarter: 2012Q4

REPORT INFORMATION
  Report Type: 
  Country: DE (occurrence: DE)
  Receive Date: 20121002
  Receipt Date: 20121130
  Transmission Date: 20130627
  Serious: Yes (Hospitalization)
  Sender: FDA-Public Use
  Company Number: DE-ROCHE-1139620

PATIENT
  Age: 38 Year
  Sex: Female

DRUGS (9)
  1. XOLAIR [Suspect]
     Indication: ASTHMA
     Route: 065
     Dates: start: 201203
  2. XOLAIR [Suspect]
     Route: 065
     Dates: start: 20120806
  3. SYMBICORT [Concomitant]
     Indication: ASTHMA
     Route: 065
  4. SINGULAIR [Concomitant]
     Indication: ASTHMA
     Route: 065
     Dates: start: 201112
  5. CORTISONE [Concomitant]
     Route: 048
     Dates: start: 201203
  6. BERODUAL [Concomitant]
  7. OMEPRAZOLE [Concomitant]
  8. PETIBELLE [Concomitant]
  9. XUSAL [Concomitant]

REACTIONS (4)
  - Vomiting [Recovered/Resolved]
  - Dizziness [Recovered/Resolved]
  - Nausea [Recovered/Resolved]
  - Headache [Recovered/Resolved]
